FAERS Safety Report 7532547-3 (Version None)
Quarter: 2011Q2

REPORT INFORMATION
  Report Type: 
  Country: None (occurrence: None)
  Receive Date: 20110608
  Receipt Date: 20110527
  Transmission Date: 20111010
  Serious: Yes (Hospitalization)
  Sender: FDA-Public Use
  Company Number: PHHY2011JP39981

PATIENT
  Age: 49 Year
  Sex: Male
  Weight: 63 kg

DRUGS (3)
  1. LOCHOLEST [Suspect]
     Dosage: 30 MG, QD
     Route: 048
  2. ISOSORBIDE DINITRATE [Suspect]
     Indication: ACUTE CORONARY SYNDROME
     Dosage: 1 DF, TID
     Route: 048
  3. NIFEDIPINE [Suspect]
     Indication: ACUTE CORONARY SYNDROME
     Dosage: 80 MG, QD
     Route: 048

REACTIONS (2)
  - ACUTE CORONARY SYNDROME [None]
  - PRINZMETAL ANGINA [None]
